FAERS Safety Report 24701220 (Version 1)
Quarter: 2024Q4

REPORT INFORMATION
  Report Type: Spontaneous
  Country: TR (occurrence: TR)
  Receive Date: 20241205
  Receipt Date: 20241205
  Transmission Date: 20250115
  Serious: Yes (Death, Life-Threatening, Other)
  Sender: BRISTOL-MYERS SQUIBB COMPANY
  Company Number: TR-BRISTOL-MYERS SQUIBB COMPANY-2024-187216

PATIENT
  Sex: Male

DRUGS (2)
  1. OPDIVO [Suspect]
     Active Substance: NIVOLUMAB
     Indication: Pleural neoplasm
  2. YERVOY [Suspect]
     Active Substance: IPILIMUMAB
     Indication: Pleural neoplasm

REACTIONS (1)
  - Death [Fatal]
